FAERS Safety Report 19487848 (Version 1)
Quarter: 2021Q3

REPORT INFORMATION
  Report Type: Spontaneous
  Country: AU (occurrence: AU)
  Receive Date: 20210702
  Receipt Date: 20210702
  Transmission Date: 20211014
  Serious: Yes (Hospitalization, Other)
  Sender: FDA-Public Use
  Company Number: AU-PFIZER INC-2021768277

PATIENT
  Sex: Female

DRUGS (1)
  1. NEURONTIN [Suspect]
     Active Substance: GABAPENTIN
     Indication: MENOPAUSAL SYMPTOMS
     Dosage: 300 MG, 3X/DAY
     Dates: start: 2012

REACTIONS (8)
  - Withdrawal syndrome [Unknown]
  - Depression [Unknown]
  - Cardiac disorder [Unknown]
  - Anxiety [Unknown]
  - Pleural effusion [Unknown]
  - Blood disorder [Unknown]
  - Pneumothorax [Unknown]
  - Off label use [Unknown]
